FAERS Safety Report 25958054 (Version 1)
Quarter: 2025Q4

REPORT INFORMATION
  Report Type: Spontaneous
  Country: CN (occurrence: CN)
  Receive Date: 20251024
  Receipt Date: 20251024
  Transmission Date: 20260118
  Serious: Yes (Other)
  Sender: EISAI
  Company Number: CN-Eisai-EC-2025-198553

PATIENT
  Age: 36 Year
  Sex: Female

DRUGS (1)
  1. DAYVIGO [Suspect]
     Active Substance: LEMBOREXANT
     Indication: Product used for unknown indication
     Route: 048
     Dates: start: 20251013, end: 20251013

REACTIONS (2)
  - Coma [Recovered/Resolved]
  - Muscle twitching [Unknown]

NARRATIVE: CASE EVENT DATE: 20251013
